FAERS Safety Report 11202598 (Version 2)
Quarter: 2015Q2

REPORT INFORMATION
  Report Type: Spontaneous
  Country: US (occurrence: US)
  Receive Date: 20150619
  Receipt Date: 20150624
  Transmission Date: 20150821
  Serious: No
  Sender: FDA-Public Use
  Company Number: US-PFIZER INC-2015205964

PATIENT
  Age: 28 Year
  Sex: Male
  Weight: 113 kg

DRUGS (1)
  1. VIAGRA [Suspect]
     Active Substance: SILDENAFIL CITRATE
     Indication: ERECTILE DYSFUNCTION
     Dosage: 25 MG, UNK (TOOK IT TWICE WITHIN A COUPLE OF DAYS OF EACH EITHER)
     Dates: start: 201505, end: 201505

REACTIONS (2)
  - Ejaculation disorder [Not Recovered/Not Resolved]
  - Penile pain [Unknown]

NARRATIVE: CASE EVENT DATE: 201505
